FAERS Safety Report 20483330 (Version 9)
Quarter: 2022Q4

REPORT INFORMATION
  Report Type: Spontaneous
  Country: US (occurrence: US)
  Receive Date: 20220217
  Receipt Date: 20221214
  Transmission Date: 20230112
  Serious: Yes (Hospitalization, Other)
  Sender: FDA-Public Use
  Company Number: US-BIOVITRUM-2021US10754

PATIENT
  Sex: Female

DRUGS (2)
  1. KINERET [Suspect]
     Active Substance: ANAKINRA
     Indication: Rheumatoid arthritis
     Dates: start: 20200124
  2. XARELTO [Suspect]
     Active Substance: RIVAROXABAN
     Indication: Product used for unknown indication

REACTIONS (15)
  - Chronic obstructive pulmonary disease [Unknown]
  - Thrombosis [Unknown]
  - Cardiac failure congestive [Unknown]
  - Internal haemorrhage [Unknown]
  - Pneumonia [Unknown]
  - Aortic stenosis [Unknown]
  - Haemorrhage [Unknown]
  - Fatigue [Unknown]
  - Blood iron decreased [Unknown]
  - Fall [Unknown]
  - Contusion [Unknown]
  - Skin atrophy [Unknown]
  - Blood blister [Unknown]
  - Product dose omission issue [Unknown]
  - Product dose omission in error [Unknown]
